FAERS Safety Report 6228029-1 (Version None)
Quarter: 2009Q2

REPORT INFORMATION
  Report Type: 
  Country: None (occurrence: None)
  Receive Date: 20090612
  Receipt Date: 20090605
  Transmission Date: 20091009
  Serious: Yes (Other)
  Sender: FDA-Public Use
  Company Number: JP-MERCK-0906USA01697

PATIENT
  Age: 92 Year
  Sex: Male

DRUGS (2)
  1. COZAAR [Suspect]
     Route: 048
     Dates: start: 20090101
  2. WARFARIN POTASSIUM [Concomitant]
     Route: 048

REACTIONS (1)
  - RHABDOMYOLYSIS [None]
